FAERS Safety Report 4533142-0 (Version None)
Quarter: 2004Q4

REPORT INFORMATION
  Report Type: 
  Country: None (occurrence: None)
  Receive Date: 20041206
  Receipt Date: 20041022
  Transmission Date: 20050328
  Serious: No
  Sender: FDA-Public Use
  Company Number: USA041081945

PATIENT
  Age: 81 Year
  Sex: Male

DRUGS (5)
  1. CYMBALTA [Suspect]
     Indication: MAJOR DEPRESSION
     Dosage: 40 MG DAY
  2. XANAX (ALPRAZOLAM DUM) [Concomitant]
  3. PROVIGIL [Concomitant]
  4. TYLENOL (CAPLET) [Concomitant]
  5. LUPRON [Concomitant]

REACTIONS (2)
  - DIZZINESS [None]
  - DYSPNOEA [None]
